FAERS Safety Report 6531277-4 (Version None)
Quarter: 2010Q1

REPORT INFORMATION
  Report Type: 
  Country: None (occurrence: None)
  Receive Date: 20100108
  Receipt Date: 20091231
  Transmission Date: 20100710
  Serious: Yes (Other)
  Sender: FDA-Public Use
  Company Number: US-TEVA-219285USA

PATIENT
  Sex: Female
  Weight: 72.186 kg

DRUGS (2)
  1. PLAN B ONE-STEP [Suspect]
     Indication: POST COITAL CONTRACEPTION
     Route: 048
     Dates: start: 20091228, end: 20091228
  2. GANO [Concomitant]
     Indication: LEUKAEMIA
     Route: 048

REACTIONS (3)
  - DIZZINESS [None]
  - HAEMATEMESIS [None]
  - HAEMATURIA [None]
